FAERS Safety Report 19464145 (Version 2)
Quarter: 2021Q2

REPORT INFORMATION
  Report Type: Other
  Country: US (occurrence: US)
  Receive Date: 20210625
  Receipt Date: 20210626
  Transmission Date: 20210717
  Serious: Yes (Hospitalization)
  Sender: FDA-Public Use
  Company Number: US-ROCHE-2856350

PATIENT
  Sex: Female

DRUGS (2)
  1. OCREVUS [Suspect]
     Active Substance: OCRELIZUMAB
     Dosage: 600 MG TO BE INFUSED EVERY 6 MONTHS
     Route: 065
  2. OCREVUS [Suspect]
     Active Substance: OCRELIZUMAB
     Indication: RELAPSING MULTIPLE SCLEROSIS
     Dosage: DOT: 04/MAR/2021, 04/AUG/2020, 07/FEB/2020, 02/AUG/2019, 11/JAN/2019, 25/JAN/2019
     Route: 065
     Dates: start: 20190111

REACTIONS (3)
  - Fall [Unknown]
  - Paraesthesia [Unknown]
  - Urinary tract infection [Unknown]
